FAERS Safety Report 4596429-1 (Version None)
Quarter: 2005Q1

REPORT INFORMATION
  Report Type: 
  Country: None (occurrence: None)
  Receive Date: 20050228
  Receipt Date: 20050212
  Transmission Date: 20050727
  Serious: Yes (Death, Other)
  Sender: FDA-Public Use
  Company Number: 2004022047

PATIENT
  Age: 39 Year
  Sex: Female

DRUGS (2)
  1. ZIPRASIDONE (CAPS) (ZIPRASIDONE) [Suspect]
     Indication: SCHIZOPHRENIA
  2. CHLORPROMAZINE HCL [Suspect]
     Indication: ILL-DEFINED DISORDER

REACTIONS (1)
  - SUDDEN DEATH [None]
